FAERS Safety Report 4812406-7 (Version None)
Quarter: 2005Q4

REPORT INFORMATION
  Report Type: 
  Country: None (occurrence: None)
  Receive Date: 20051028
  Receipt Date: 20050125
  Transmission Date: 20060501
  Serious: No
  Sender: FDA-Public Use
  Company Number: US-GLAXOSMITHKLINE-A0542422A

PATIENT
  Age: 22 Year
  Sex: Female
  Weight: 70.9 kg

DRUGS (3)
  1. ADVAIR DISKUS 100/50 [Suspect]
     Indication: CHRONIC OBSTRUCTIVE PULMONARY DISEASE
     Route: 055
     Dates: start: 20050121, end: 20050122
  2. FLOVENT [Concomitant]
  3. ALBUTEROL [Concomitant]
     Route: 055

REACTIONS (1)
  - URTICARIA [None]
